FAERS Safety Report 22144250 (Version 1)
Quarter: 2023Q1

REPORT INFORMATION
  Report Type: Spontaneous
  Country: CA (occurrence: CA)
  Receive Date: 20230328
  Receipt Date: 20230328
  Transmission Date: 20230418
  Serious: Yes (Hospitalization)
  Sender: FDA-Public Use
  Company Number: CA-BAXTER-2023BAX016439

PATIENT

DRUGS (1)
  1. BUPIVACAINE [Suspect]
     Active Substance: BUPIVACAINE
     Dosage: DOSAGE FORM: SOLUTION EPIDURAL AT UNSPECIFIED DOSE AND FREQUENCY (PRESERVATIVE FREE)
     Route: 065

REACTIONS (1)
  - Drug ineffective [Unknown]
